FAERS Safety Report 5843468-6 (Version None)
Quarter: 2008Q3

REPORT INFORMATION
  Report Type: 
  Country: None (occurrence: None)
  Receive Date: 20080811
  Receipt Date: 20080805
  Transmission Date: 20090109
  Serious: Yes (Death, Hospitalization)
  Sender: FDA-Public Use
  Company Number: 2007-152815-NL

PATIENT
  Age: 16 Month
  Sex: Male

DRUGS (2)
  1. CHORIONIC GONADOTROPIN [Suspect]
     Indication: CRYPTORCHISM
     Dosage: 1500 IU QD INTRAMUSCULAR
     Route: 030
     Dates: start: 20061211, end: 20061213
  2. GONADORELIN INJ [Concomitant]

REACTIONS (20)
  - ACUTE RESPIRATORY DISTRESS SYNDROME [None]
  - BRADYCARDIA [None]
  - BRAIN HERNIATION [None]
  - BRAIN HYPOXIA [None]
  - CANDIDIASIS [None]
  - COMA [None]
  - DIARRHOEA [None]
  - ENCEPHALITIS VIRAL [None]
  - FALL [None]
  - HAEMODIALYSIS [None]
  - NECROTISING COLITIS [None]
  - PERITONITIS [None]
  - PHARMACEUTICAL PRODUCT COMPLAINT [None]
  - POOR PERIPHERAL CIRCULATION [None]
  - PUPIL FIXED [None]
  - RENAL FAILURE [None]
  - RHABDOMYOLYSIS [None]
  - THERAPEUTIC PRODUCT CONTAMINATION [None]
  - URINE OUTPUT DECREASED [None]
  - VARICELLA [None]
